FAERS Safety Report 7450293-1 (Version None)
Quarter: 2011Q2

REPORT INFORMATION
  Report Type: 
  Country: None (occurrence: None)
  Receive Date: 20110502
  Receipt Date: 20110201
  Transmission Date: 20111010
  Serious: Yes (Other)
  Sender: FDA-Public Use
  Company Number: US-BAYER-201039814NA

PATIENT
  Age: 36 Year
  Sex: Female
  Weight: 68 kg

DRUGS (3)
  1. YASMIN [Suspect]
     Indication: ACNE
     Dosage: UNK
  2. YAZ [Suspect]
     Indication: ACNE
     Dosage: UNK
  3. OCELLA [Suspect]
     Indication: ACNE
     Dosage: UNK

REACTIONS (13)
  - BILIARY COLIC [None]
  - ESCHERICHIA INFECTION [None]
  - CHOLECYSTITIS CHRONIC [None]
  - MULTIPLE INJURIES [None]
  - CONSTIPATION [None]
  - GALLBLADDER DISORDER [None]
  - NAUSEA [None]
  - URINARY TRACT INFECTION [None]
  - DYSPNOEA [None]
  - PAIN [None]
  - INSOMNIA [None]
  - HOT FLUSH [None]
  - AMENORRHOEA [None]
